FAERS Safety Report 6199031-3 (Version None)
Quarter: 2009Q2

REPORT INFORMATION
  Report Type: 
  Country: None (occurrence: None)
  Receive Date: 20090522
  Receipt Date: 20090513
  Transmission Date: 20091009
  Serious: Yes (Other)
  Sender: FDA-Public Use
  Company Number: CA-JNJFOC-20080800667

PATIENT
  Sex: Female
  Weight: 67.6 kg

DRUGS (1)
  1. REMICADE [Suspect]
     Indication: RHEUMATOID ARTHRITIS
     Dosage: TOTAL # DOSES: 9
     Route: 042

REACTIONS (2)
  - FOOT FRACTURE [None]
  - GAIT DISTURBANCE [None]
